FAERS Safety Report 5829502-8 (Version None)
Quarter: 2008Q3

REPORT INFORMATION
  Report Type: 
  Country: None (occurrence: None)
  Receive Date: 20080729
  Receipt Date: 20080714
  Transmission Date: 20090109
  Serious: Yes (Disabling, Other)
  Sender: FDA-Public Use
  Company Number: TPA2008A00224

PATIENT
  Age: 55 Year
  Sex: Male
  Weight: 118.8424 kg

DRUGS (11)
  1. ACTOS [Suspect]
     Indication: DIABETES MELLITUS INADEQUATE CONTROL
     Dosage: 15 MG, 1 IN 1 D, PER ORAL
     Route: 048
     Dates: start: 20071001, end: 20080218
  2. ACTOS [Suspect]
     Indication: TYPE 2 DIABETES MELLITUS
     Dosage: 15 MG, 1 IN 1 D, PER ORAL
     Route: 048
     Dates: start: 20071001, end: 20080218
  3. DIOVAN HCT [Concomitant]
  4. DIOVAN [Concomitant]
  5. BYETTA (ANTI-DIABETICS) (INJECTION) [Concomitant]
  6. LEXAPRO [Concomitant]
  7. LORAZEPAM [Concomitant]
  8. MUCINEX-D (GUAIFENESIN, PSEUDEPHEDRINE HYDROCHLOIRDE) [Concomitant]
  9. ADVAIR DISKUS 100/50 [Concomitant]
  10. AMBIEN CR (ZOLPIDEN TARTRATE) [Concomitant]
  11. PROTONIX [Concomitant]

REACTIONS (16)
  - AGITATION [None]
  - ANXIETY [None]
  - DELIRIUM [None]
  - DEPRESSION [None]
  - DRUG INEFFECTIVE [None]
  - DYSPNOEA [None]
  - ERYTHEMA [None]
  - GAIT DISTURBANCE [None]
  - GINGIVAL PAIN [None]
  - PAIN [None]
  - RENAL IMPAIRMENT [None]
  - TOOTH ABSCESS [None]
  - TOOTH FRACTURE [None]
  - TOOTH LOSS [None]
  - WEIGHT DECREASED [None]
  - WHEEZING [None]
